FAERS Safety Report 16274551 (Version 1)
Quarter: 2019Q2

REPORT INFORMATION
  Report Type: Spontaneous
  Country: TR (occurrence: TR)
  Receive Date: 20190504
  Receipt Date: 20190504
  Transmission Date: 20190711
  Serious: Yes (Other)
  Sender: FDA-Public Use
  Company Number: PHHY2019TR095748

PATIENT
  Age: 56 Year
  Sex: Female

DRUGS (1)
  1. ANASTROZOLE. [Suspect]
     Active Substance: ANASTROZOLE
     Indication: INVASIVE DUCTAL BREAST CARCINOMA
     Dosage: 1 MG, QD
     Route: 065

REACTIONS (4)
  - Metamorphopsia [Unknown]
  - Visual impairment [Not Recovered/Not Resolved]
  - Vitreous adhesions [Not Recovered/Not Resolved]
  - Vitreous floaters [Unknown]
